FAERS Safety Report 15375404 (Version 2)
Quarter: 2018Q4

REPORT INFORMATION
  Report Type: Spontaneous
  Country: US (occurrence: US)
  Receive Date: 20180912
  Receipt Date: 20181009
  Transmission Date: 20190204
  Serious: No
  Sender: FDA-Public Use
  Company Number: US-SA-2018SA255339

PATIENT
  Age: 73 Year
  Sex: Female
  Weight: 80.73 kg

DRUGS (1)
  1. DUPIXENT [Suspect]
     Active Substance: DUPILUMAB
     Indication: DERMATITIS ATOPIC
     Dosage: 300 MG, QOW
     Route: 058
     Dates: start: 201806

REACTIONS (4)
  - Skin exfoliation [Unknown]
  - Skin fissures [Unknown]
  - Pruritus [Unknown]
  - Infection [Unknown]

NARRATIVE: CASE EVENT DATE: 201807
